FAERS Safety Report 26093019 (Version 1)
Quarter: 2025Q4

REPORT INFORMATION
  Report Type: Spontaneous
  Country: US (occurrence: None)
  Receive Date: 20251126
  Receipt Date: 20251126
  Transmission Date: 20260118
  Serious: Yes (Hospitalization)
  Sender: FDA-CTU
  Company Number: None

PATIENT
  Age: 27 Year
  Sex: Female

DRUGS (1)
  1. TAVNEOS [Suspect]
     Active Substance: AVACOPAN
     Dosage: FREQUENCY : TWICE A DAY;?
     Route: 048
     Dates: start: 20250630

REACTIONS (6)
  - Dyspnoea [None]
  - Immune system disorder [None]
  - Disease complication [None]
  - Tracheal stenosis [None]
  - Medical procedure [None]
  - Therapy interrupted [None]

NARRATIVE: CASE EVENT DATE: 20251126
